FAERS Safety Report 6909612-4 (Version None)
Quarter: 2010Q3

REPORT INFORMATION
  Report Type: 
  Country: None (occurrence: None)
  Receive Date: 20100805
  Receipt Date: 20100628
  Transmission Date: 20110219
  Serious: No
  Sender: FDA-Public Use
  Company Number: US-TYCO HEALTHCARE/MALLINCKRODT-T201001518

PATIENT
  Sex: Male
  Weight: 74.83 kg

DRUGS (7)
  1. FENTANYL CITRATE [Suspect]
     Indication: PAIN
     Dosage: 800 UG QD
     Route: 048
  2. SOMA [Concomitant]
     Indication: MUSCLE SPASMS
     Dosage: 325 MG, 4-6 TIMES QD
     Route: 048
  3. NORCO [Concomitant]
     Indication: PAIN
     Dosage: 4-6 TIMES QD
     Route: 048
  4. FENTANYL [Concomitant]
     Indication: PAIN
     Dosage: UNK
     Route: 037
  5. MARCAINE                           /00330101/ [Concomitant]
     Indication: PAIN
     Dosage: UNK
     Route: 037
  6. BACLOFEN [Concomitant]
     Indication: PAIN
     Dosage: UNK
     Route: 037
  7. AMBIEN [Concomitant]
     Indication: INSOMNIA
     Dosage: 10 MG QHS
     Route: 048

REACTIONS (5)
  - DRUG EFFECT DECREASED [None]
  - DYSGEUSIA [None]
  - INAPPROPRIATE SCHEDULE OF DRUG ADMINISTRATION [None]
  - OFF LABEL USE [None]
  - WRONG TECHNIQUE IN DRUG USAGE PROCESS [None]
